FAERS Safety Report 6180766-3 (Version None)
Quarter: 2009Q2

REPORT INFORMATION
  Report Type: 
  Country: None (occurrence: None)
  Receive Date: 20090506
  Receipt Date: 20081203
  Transmission Date: 20091009
  Serious: No
  Sender: FDA-Public Use
  Company Number: A0759642A

PATIENT
  Sex: Female

DRUGS (1)
  1. AMOXICILLIN [Suspect]
     Dosage: 875MG UNKNOWN
     Route: 048

REACTIONS (4)
  - DRUG HYPERSENSITIVITY [None]
  - DYSPNOEA [None]
  - PRODUCT QUALITY ISSUE [None]
  - PRURITUS [None]
